FAERS Safety Report 4752572-5 (Version None)
Quarter: 2005Q3

REPORT INFORMATION
  Report Type: 
  Country: None (occurrence: None)
  Receive Date: 20050824
  Receipt Date: 20050810
  Transmission Date: 20060218
  Serious: Yes (Hospitalization, Other)
  Sender: FDA-Public Use
  Company Number: USA0508105186

PATIENT
  Age: 70 Year
  Sex: Female
  Weight: 107 kg

DRUGS (2)
  1. HUMALOG [Suspect]
     Dosage: 26 U DAY
     Dates: start: 19960101
  2. LANTUS [Concomitant]

REACTIONS (10)
  - ARTHRALGIA [None]
  - BLOOD GLUCOSE DECREASED [None]
  - BLOOD GLUCOSE INCREASED [None]
  - CARDIAC DISORDER [None]
  - CHOLELITHIASIS [None]
  - EYE HAEMORRHAGE [None]
  - JOINT RANGE OF MOTION DECREASED [None]
  - PHARMACEUTICAL PRODUCT COMPLAINT [None]
  - VASCULAR OCCLUSION [None]
  - VISUAL ACUITY REDUCED [None]
